FAERS Safety Report 7213857-6 (Version None)
Quarter: 2011Q1

REPORT INFORMATION
  Report Type: 
  Country: None (occurrence: None)
  Receive Date: 20110106
  Receipt Date: 20101229
  Transmission Date: 20110831
  Serious: Yes (Other)
  Sender: FDA-Public Use
  Company Number: JP-GENENTECH-311895

PATIENT
  Sex: Female

DRUGS (5)
  1. ADRIACIN [Suspect]
     Indication: PRODUCT USED FOR UNKNOWN INDICATION
  2. ONCOVIN [Suspect]
     Indication: PRODUCT USED FOR UNKNOWN INDICATION
     Dosage: UNK
  3. RITUXAN [Suspect]
     Indication: LYMPHOMA
     Dosage: 500 MG, UNK
     Route: 042
     Dates: start: 20091211
  4. PREDONINE [Suspect]
     Indication: PRODUCT USED FOR UNKNOWN INDICATION
  5. ENDOXAN [Suspect]
     Indication: PRODUCT USED FOR UNKNOWN INDICATION

REACTIONS (1)
  - RESPIRATORY FAILURE [None]
